FAERS Safety Report 7070167-8 (Version None)
Quarter: 2010Q4

REPORT INFORMATION
  Report Type: 
  Country: None (occurrence: None)
  Receive Date: 20101028
  Receipt Date: 20100827
  Transmission Date: 20110411
  Serious: No
  Sender: FDA-Public Use
  Company Number: US-WYE-H17202410

PATIENT
  Sex: Male

DRUGS (1)
  1. BENEFIX [Suspect]
     Indication: FACTOR IX DEFICIENCY
     Dosage: ON THERAPY FOR YEARS, DOSE AND DATES NOT PROVIDED
     Route: 042

REACTIONS (2)
  - EPISTAXIS [None]
  - FACIAL BONES FRACTURE [None]
